FAERS Safety Report 17036746 (Version 1)
Quarter: 2019Q4

REPORT INFORMATION
  Report Type: Spontaneous
  Country: US (occurrence: US)
  Receive Date: 20191015
  Receipt Date: 20191015
  Transmission Date: 20200122
  Serious: No
  Sender: FDA-Public Use
  Company Number: None

PATIENT
  Age: 98 Year
  Sex: Male
  Weight: 50.8 kg

DRUGS (1)
  1. INSULIN ASPART [Suspect]
     Active Substance: INSULIN ASPART
     Indication: DIABETES MELLITUS
     Dates: start: 20190611, end: 20190613

REACTIONS (4)
  - Moaning [None]
  - Hypoglycaemia [None]
  - Lip haemorrhage [None]
  - Lethargy [None]

NARRATIVE: CASE EVENT DATE: 20190613
